FAERS Safety Report 19272310 (Version 3)
Quarter: 2022Q1

REPORT INFORMATION
  Report Type: Report from Study
  Country: JP (occurrence: JP)
  Receive Date: 20210519
  Receipt Date: 20220324
  Transmission Date: 20220423
  Serious: Yes (Hospitalization)
  Sender: FDA-Public Use
  Company Number: JP-JNJFOC-20210531938

PATIENT
  Age: 74 Year
  Sex: Male

DRUGS (58)
  1. ZYTIGA [Suspect]
     Active Substance: ABIRATERONE ACETATE
     Indication: Hormone-dependent prostate cancer
     Route: 048
     Dates: start: 20210407, end: 20210412
  2. ZYTIGA [Suspect]
     Active Substance: ABIRATERONE ACETATE
     Route: 048
     Dates: start: 20210413, end: 20210427
  3. ZYTIGA [Suspect]
     Active Substance: ABIRATERONE ACETATE
     Route: 048
     Dates: start: 20210609, end: 20210705
  4. ZYTIGA [Suspect]
     Active Substance: ABIRATERONE ACETATE
     Route: 048
     Dates: start: 20210706, end: 20210802
  5. ZYTIGA [Suspect]
     Active Substance: ABIRATERONE ACETATE
     Route: 048
     Dates: start: 20210803, end: 20210805
  6. ZYTIGA [Suspect]
     Active Substance: ABIRATERONE ACETATE
     Route: 048
     Dates: start: 20210812, end: 20210830
  7. ZYTIGA [Suspect]
     Active Substance: ABIRATERONE ACETATE
     Route: 048
     Dates: start: 20210831, end: 20210927
  8. ZYTIGA [Suspect]
     Active Substance: ABIRATERONE ACETATE
     Route: 048
     Dates: start: 20210928, end: 20211025
  9. ZYTIGA [Suspect]
     Active Substance: ABIRATERONE ACETATE
     Route: 048
     Dates: start: 20211026, end: 20211122
  10. ZYTIGA [Suspect]
     Active Substance: ABIRATERONE ACETATE
     Route: 048
     Dates: start: 20211123, end: 20211125
  11. CAPIVASERTIB [Suspect]
     Active Substance: CAPIVASERTIB
     Indication: Hormone-dependent prostate cancer
     Route: 065
     Dates: start: 20210413, end: 20210416
  12. CAPIVASERTIB [Suspect]
     Active Substance: CAPIVASERTIB
     Route: 065
     Dates: start: 20210420, end: 20210423
  13. CAPIVASERTIB [Suspect]
     Active Substance: CAPIVASERTIB
     Route: 065
     Dates: start: 20210427, end: 20210427
  14. CAPIVASERTIB [Suspect]
     Active Substance: CAPIVASERTIB
     Route: 065
     Dates: start: 20210525, end: 20210528
  15. CAPIVASERTIB [Suspect]
     Active Substance: CAPIVASERTIB
     Route: 065
     Dates: start: 20210601, end: 20210604
  16. CAPIVASERTIB [Suspect]
     Active Substance: CAPIVASERTIB
     Route: 065
     Dates: start: 20210608, end: 20210611
  17. CAPIVASERTIB [Suspect]
     Active Substance: CAPIVASERTIB
     Route: 065
     Dates: start: 20210615, end: 20210616
  18. CAPIVASERTIB [Suspect]
     Active Substance: CAPIVASERTIB
     Route: 065
     Dates: start: 20210617, end: 20210617
  19. CAPIVASERTIB [Suspect]
     Active Substance: CAPIVASERTIB
     Route: 065
     Dates: start: 20210706, end: 20210706
  20. CAPIVASERTIB [Suspect]
     Active Substance: CAPIVASERTIB
     Route: 065
     Dates: start: 20210707, end: 20210709
  21. CAPIVASERTIB [Suspect]
     Active Substance: CAPIVASERTIB
     Route: 065
     Dates: start: 20210713, end: 20210716
  22. CAPIVASERTIB [Suspect]
     Active Substance: CAPIVASERTIB
     Route: 065
     Dates: start: 20210720, end: 20210723
  23. CAPIVASERTIB [Suspect]
     Active Substance: CAPIVASERTIB
     Route: 065
     Dates: start: 20210727, end: 20210730
  24. CAPIVASERTIB [Suspect]
     Active Substance: CAPIVASERTIB
     Route: 065
     Dates: start: 20210803, end: 20210804
  25. CAPIVASERTIB [Suspect]
     Active Substance: CAPIVASERTIB
     Route: 065
     Dates: start: 20210805, end: 20210805
  26. CAPIVASERTIB [Suspect]
     Active Substance: CAPIVASERTIB
     Route: 065
     Dates: start: 20210812, end: 20210813
  27. CAPIVASERTIB [Suspect]
     Active Substance: CAPIVASERTIB
     Route: 065
     Dates: start: 20210817, end: 20210818
  28. CAPIVASERTIB [Suspect]
     Active Substance: CAPIVASERTIB
     Route: 065
     Dates: start: 20210907, end: 20210910
  29. CAPIVASERTIB [Suspect]
     Active Substance: CAPIVASERTIB
     Route: 065
     Dates: start: 20210921, end: 20210924
  30. CAPIVASERTIB [Suspect]
     Active Substance: CAPIVASERTIB
     Route: 065
     Dates: start: 20210928, end: 20211001
  31. CAPIVASERTIB [Suspect]
     Active Substance: CAPIVASERTIB
     Route: 065
     Dates: start: 20211005, end: 20211005
  32. CAPIVASERTIB [Suspect]
     Active Substance: CAPIVASERTIB
     Route: 065
     Dates: start: 20211006, end: 20211008
  33. CAPIVASERTIB [Suspect]
     Active Substance: CAPIVASERTIB
     Route: 065
     Dates: start: 20211012, end: 20211015
  34. CAPIVASERTIB [Suspect]
     Active Substance: CAPIVASERTIB
     Route: 065
     Dates: start: 20211019, end: 20211022
  35. CAPIVASERTIB [Suspect]
     Active Substance: CAPIVASERTIB
     Route: 065
     Dates: start: 20211026, end: 20211029
  36. CAPIVASERTIB [Suspect]
     Active Substance: CAPIVASERTIB
     Route: 065
     Dates: start: 20211102, end: 20211105
  37. CAPIVASERTIB [Suspect]
     Active Substance: CAPIVASERTIB
     Route: 065
     Dates: start: 20211109, end: 20211112
  38. CAPIVASERTIB [Suspect]
     Active Substance: CAPIVASERTIB
     Route: 065
     Dates: start: 20211116, end: 20211119
  39. CAPIVASERTIB [Suspect]
     Active Substance: CAPIVASERTIB
     Route: 065
     Dates: start: 20211123, end: 20211124
  40. CAPIVASERTIB [Suspect]
     Active Substance: CAPIVASERTIB
     Route: 065
     Dates: start: 20211125, end: 20211125
  41. AMLODIPINE MESYLATE [Concomitant]
     Active Substance: AMLODIPINE MESYLATE
     Indication: Hypertension
     Route: 048
     Dates: start: 20180821
  42. FEBRICET [Concomitant]
     Indication: Gout
     Route: 048
     Dates: start: 20180821, end: 20210426
  43. TRIMEBUTINE MALEATE [Concomitant]
     Active Substance: TRIMEBUTINE MALEATE
     Indication: Chronic gastritis
     Route: 048
     Dates: start: 20190629, end: 20210929
  44. REBAMIPIDE [Concomitant]
     Active Substance: REBAMIPIDE
     Indication: Chronic gastritis
     Route: 048
     Dates: start: 20190629, end: 20211201
  45. PANCRELIPASE [Concomitant]
     Active Substance: PANCRELIPASE
     Indication: Chronic gastritis
     Route: 048
     Dates: start: 201912, end: 20211130
  46. AZUNOL [Concomitant]
     Indication: Laryngopharyngitis
     Route: 048
     Dates: start: 20200101
  47. BILASTINE [Concomitant]
     Active Substance: BILASTINE
     Indication: Rhinitis allergic
     Route: 048
     Dates: start: 20200817
  48. OXETHAZAINE [Concomitant]
     Active Substance: OXETHAZAINE
     Indication: Chronic gastritis
     Route: 048
     Dates: start: 20201017
  49. CARBOCYSTEINE [Concomitant]
     Active Substance: CARBOCYSTEINE
     Indication: Laryngopharyngitis
     Route: 048
     Dates: start: 20210115, end: 20210428
  50. DESLORATADINE [Concomitant]
     Active Substance: DESLORATADINE
     Indication: Rhinitis allergic
     Route: 048
     Dates: start: 202103
  51. PREDNISOLONE SODIUM SUCCINATE [Concomitant]
     Active Substance: PREDNISOLONE SODIUM SUCCINATE
     Indication: Social avoidant behaviour
     Route: 048
     Dates: start: 20210407, end: 20211213
  52. MYSER [Concomitant]
     Indication: Injection site reaction
     Dosage: 0.5 APPLICATE
     Route: 061
     Dates: start: 20210413, end: 20210524
  53. FLUTICASONE PROPIONATE\FORMOTEROL FUMARATE [Concomitant]
     Active Substance: FLUTICASONE PROPIONATE\FORMOTEROL FUMARATE
     Indication: Asthma
     Route: 055
     Dates: start: 20200714
  54. CALONAL [Concomitant]
     Active Substance: ACETAMINOPHEN
     Indication: Injection site reaction
     Route: 048
     Dates: start: 20210413, end: 20210524
  55. MOMETASONE [Concomitant]
     Active Substance: MOMETASONE
     Indication: Rhinitis allergic
     Dosage: 2.000 PUFF
     Route: 045
     Dates: start: 20210414, end: 20210716
  56. COR TYZINE [Concomitant]
     Indication: Rhinitis allergic
     Dosage: 2.000 PUFF
     Route: 065
     Dates: start: 20210414, end: 20210420
  57. EVIPROSTAT [SERENOA REPENS] [Concomitant]
     Indication: Pollakiuria
     Dosage: 1 DF
     Dates: start: 20210420
  58. SITAFLOXACIN [Concomitant]
     Active Substance: SITAFLOXACIN
     Indication: Pollakiuria
     Route: 065
     Dates: start: 20210420

REACTIONS (1)
  - Malaise [Recovered/Resolved]

NARRATIVE: CASE EVENT DATE: 20210424
